FAERS Safety Report 15878071 (Version 1)
Quarter: 2019Q1

REPORT INFORMATION
  Report Type: Report from Study
  Country: IT (occurrence: IT)
  Receive Date: 20190128
  Receipt Date: 20190128
  Transmission Date: 20190417
  Serious: Yes (Other)
  Sender: FDA-Public Use
  Company Number: IT-ACCORD-103413

PATIENT
  Age: 74 Year
  Sex: Female

DRUGS (3)
  1. INTERLEUKINS [Suspect]
     Active Substance: INTERLEUKIN NOS
     Indication: PANCREATIC CARCINOMA
     Dosage: 18 MUI/SQM ON DAY 4-6 AND 18-20. THE CYCLE WAS REPEATED ON DAY 29
     Route: 042
  2. CYCLOPHOSPHAMIDE/CYCLOPHOSPHAMIDE MONOHYDRATE [Suspect]
     Active Substance: CYCLOPHOSPHAMIDE
     Indication: PANCREATIC CARCINOMA
     Dosage: ON DAY 1, REPEATED ON DAY 29
     Route: 042
  3. FLUOROURACIL. [Suspect]
     Active Substance: FLUOROURACIL
     Indication: PANCREATIC CARCINOMA
     Dosage: 500 MG/M2 ON DAY 1, FOLLOWED BY IV INFUSION
     Route: 040

REACTIONS (7)
  - Capillary leak syndrome [Recovered/Resolved]
  - Diarrhoea [Recovered/Resolved]
  - Dermatitis exfoliative generalised [Recovered/Resolved]
  - Hypotension [Recovered/Resolved]
  - Eosinophilia [Recovered/Resolved]
  - Pyrexia [Recovered/Resolved]
  - Hypothyroidism [Not Recovered/Not Resolved]
